FAERS Safety Report 23782189 (Version 1)
Quarter: 2024Q2

REPORT INFORMATION
  Report Type: Spontaneous
  Country: US (occurrence: None)
  Receive Date: 20240424
  Receipt Date: 20240424
  Transmission Date: 20240716
  Serious: No
  Sender: FDA-Public Use
  Company Number: None

PATIENT
  Age: 75 Year
  Sex: Male

DRUGS (1)
  1. ACETAMINOPHEN [Suspect]
     Active Substance: ACETAMINOPHEN
     Indication: Pain
     Dates: start: 20230322, end: 20240328

REACTIONS (9)
  - International normalised ratio increased [None]
  - Liver function test increased [None]
  - Intentional overdose [None]
  - Lactic acidosis [None]
  - Hyperglycaemia [None]
  - Anion gap [None]
  - Metabolic acidosis [None]
  - Atrial fibrillation [None]
  - Multiple organ dysfunction syndrome [None]

NARRATIVE: CASE EVENT DATE: 20240329
